FAERS Safety Report 13032076 (Version 2)
Quarter: 2017Q3

REPORT INFORMATION
  Report Type: Report from Study
  Country: CH (occurrence: CH)
  Receive Date: 20161215
  Receipt Date: 20170914
  Transmission Date: 20171127
  Serious: Yes (Hospitalization, Other)
  Sender: FDA-Public Use
  Company Number: CH-ASTELLAS-2016US048860

PATIENT
  Age: 69 Year
  Sex: Female

DRUGS (3)
  1. ERLOTINIB [Suspect]
     Active Substance: ERLOTINIB
     Indication: NON-SMALL CELL LUNG CANCER
     Dosage: 150 MG, ONCE DAILY (DATE OF LAST ADMINISTRATION BEFORE AE : 01/OCT/2014)
     Route: 048
     Dates: start: 20140819
  2. BEVACIZUMAB. [Suspect]
     Active Substance: BEVACIZUMAB
     Indication: NON-SMALL CELL LUNG CANCER
     Dosage: 960 MG, CYCLIC (15 MG/KGMOST RECENT DOSE PRIOR TO SAE: 10/SEP/2014)
     Route: 042
     Dates: start: 20140819
  3. BELOC                              /00376903/ [Concomitant]
     Active Substance: METOPROLOL TARTRATE
     Indication: HYPERTENSION
     Dosage: UNK UNK, UNKNOWN FREQ.
     Route: 048
     Dates: start: 20140819

REACTIONS (2)
  - Hypertension [Not Recovered/Not Resolved]
  - Hypertension [Recovered/Resolved]

NARRATIVE: CASE EVENT DATE: 20141001
